FAERS Safety Report 7110896-0 (Version None)
Quarter: 2010Q4

REPORT INFORMATION
  Report Type: 
  Country: None (occurrence: None)
  Receive Date: 20101116
  Receipt Date: 20101116
  Transmission Date: 20110411
  Serious: Yes (Hospitalization)
  Sender: FDA-Public Use
  Company Number: None

PATIENT
  Age: 83 Year
  Weight: 77.5651 kg

DRUGS (2)
  1. AMPICILLIN AND SULBACTAM [Suspect]
     Indication: INFECTION
     Dosage: 3 GRAMS Q 6 HOURS IV DRIP
     Route: 041
  2. VANCOMYCIN [Suspect]
     Indication: INFECTION
     Dosage: 750MG Q 12 HOURS IV DRIP
     Route: 041

REACTIONS (3)
  - RASH ERYTHEMATOUS [None]
  - SKIN EXFOLIATION [None]
  - VASCULITIS [None]
